FAERS Safety Report 4359988-X (Version None)
Quarter: 2004Q2

REPORT INFORMATION
  Report Type: 
  Country: None (occurrence: None)
  Receive Date: 20040518
  Receipt Date: 20040518
  Transmission Date: 20050107
  Serious: Yes (Other)
  Sender: FDA-Public Use
  Company Number: None

PATIENT
  Age: 43 Year
  Sex: Female
  Weight: 54.4316 kg

DRUGS (1)
  1. LEXAPRO [Suspect]
     Indication: DEPRESSION
     Dosage: 15MG DAILY ORAL
     Route: 048

REACTIONS (7)
  - ANGER [None]
  - DIVORCED [None]
  - FAMILY STRESS [None]
  - MEDICATION ERROR [None]
  - MID-LIFE CRISIS [None]
  - PERSONALITY CHANGE [None]
  - RELATIONSHIP BREAKDOWN [None]
